FAERS Safety Report 5483115-9 (Version None)
Quarter: 2007Q4

REPORT INFORMATION
  Report Type: 
  Country: None (occurrence: None)
  Receive Date: 20071009
  Receipt Date: 20070827
  Transmission Date: 20080405
  Serious: Yes (Other)
  Sender: FDA-Public Use
  Company Number: CIP07001816

PATIENT
  Sex: Female

DRUGS (2)
  1. ACTONEL [Suspect]
     Dosage: ORAL
     Route: 048
     Dates: start: 20020101, end: 20060501
  2. FOSAMAX [Suspect]

REACTIONS (13)
  - BONE DISORDER [None]
  - CHRONIC SINUSITIS [None]
  - EXOSTOSIS [None]
  - HYPOAESTHESIA ORAL [None]
  - NECROSIS [None]
  - OROANTRAL FISTULA [None]
  - OSTEONECROSIS [None]
  - PAIN IN JAW [None]
  - PALATAL DISORDER [None]
  - PERIODONTAL DISEASE [None]
  - TOOTH EXTRACTION [None]
  - TOOTH LOSS [None]
  - WOUND DEHISCENCE [None]
